FAERS Safety Report 15352129 (Version 2)
Quarter: 2019Q2

REPORT INFORMATION
  Report Type: Spontaneous
  Country: DE (occurrence: DE)
  Receive Date: 20180905
  Receipt Date: 20190502
  Transmission Date: 20190711
  Serious: Yes (Hospitalization, Other)
  Sender: FDA-Public Use
  Company Number: DE-ABBVIE-18K-062-2467286-00

PATIENT
  Age: 52 Year
  Sex: Female

DRUGS (5)
  1. HUMIRA [Suspect]
     Active Substance: ADALIMUMAB
     Indication: RHEUMATOID ARTHRITIS
     Route: 058
     Dates: start: 201609, end: 201703
  2. MTX [Suspect]
     Active Substance: METHOTREXATE SODIUM
     Dosage: DOSE DECREASED
     Route: 065
     Dates: start: 2017
  3. MTX [Suspect]
     Active Substance: METHOTREXATE SODIUM
     Indication: PRODUCT USED FOR UNKNOWN INDICATION
     Route: 065
     Dates: end: 201703
  4. ORENCIA [Suspect]
     Active Substance: ABATACEPT
     Indication: PRODUCT USED FOR UNKNOWN INDICATION
     Dosage: UNKNOWN
     Route: 065
     Dates: start: 201706
  5. BENEPALI [Suspect]
     Active Substance: ETANERCEPT
     Indication: RHEUMATOID ARTHRITIS
     Route: 065
     Dates: start: 201704, end: 201704

REACTIONS (6)
  - Panniculitis [Unknown]
  - Sebaceous gland infection [Unknown]
  - Contraindicated product administered [Unknown]
  - Keratitis [Unknown]
  - Dry eye [Unknown]
  - Lymphangitis [Unknown]

NARRATIVE: CASE EVENT DATE: 20170502
